FAERS Safety Report 11846767 (Version 1)
Quarter: 2015Q4

REPORT INFORMATION
  Report Type: Spontaneous
  Country: FR (occurrence: FR)
  Receive Date: 20151217
  Receipt Date: 20151217
  Transmission Date: 20160305
  Serious: Yes (Hospitalization, Other)
  Sender: FDA-Public Use
  Company Number: FR-MEDTRONIC-1045620

PATIENT
  Age: 50 Year
  Sex: Male

DRUGS (3)
  1. BACLOFEN UNKNOWN [Suspect]
     Active Substance: BACLOFEN
     Dates: start: 20140928
  2. BACLOFEN UNKNOWN [Suspect]
     Active Substance: BACLOFEN
     Indication: ALCOHOLISM
     Dates: start: 20140618
  3. BACLOFEN UNKNOWN [Suspect]
     Active Substance: BACLOFEN
     Dates: end: 201408

REACTIONS (13)
  - Agitation [Recovered/Resolved]
  - Delirium [Recovered/Resolved]
  - Speech disorder [Recovered/Resolved]
  - Tremor [Recovered/Resolved]
  - Abnormal behaviour [Recovered/Resolved]
  - Confabulation [Recovered/Resolved]
  - Disorientation [Recovered/Resolved]
  - Hallucination [Recovered/Resolved]
  - Delirium tremens [Recovered/Resolved]
  - Drug withdrawal syndrome [Recovered/Resolved]
  - Head injury [Recovered/Resolved]
  - Confusional state [Recovered/Resolved]
  - Anterograde amnesia [Recovered/Resolved]

NARRATIVE: CASE EVENT DATE: 20140818
